FAERS Safety Report 8822213 (Version 2)
Quarter: 2012Q4

REPORT INFORMATION
  Report Type: 
  Country: US (occurrence: US)
  Receive Date: 20121003
  Receipt Date: 20121108
  Transmission Date: 20130627
  Serious: Yes (Hospitalization)
  Sender: FDA-Public Use
  Company Number: US-PFIZER INC-2012240479

PATIENT
  Age: 70 Year
  Sex: Female

DRUGS (13)
  1. SUTENT [Suspect]
     Indication: KIDNEY CANCER
     Dosage: 50 mg, 1x/day
     Dates: start: 201206, end: 20120920
  2. ATACAND [Concomitant]
     Dosage: UNK
  3. AMLODIPINE [Concomitant]
     Dosage: UNK
  4. METOPROLOL [Concomitant]
     Dosage: UNK
  5. MEGACE [Concomitant]
     Dosage: UNK
  6. GLIPIZIDE [Concomitant]
     Dosage: UNK
  7. PROCRIT [Concomitant]
     Dosage: UNK
  8. IRON [Concomitant]
     Dosage: UNK
  9. TYLENOL [Concomitant]
     Dosage: UNK
  10. OMEPRAZOLE [Concomitant]
     Dosage: UNK
  11. METAMUCIL [Concomitant]
     Dosage: UNK
  12. NEPRO [Concomitant]
     Dosage: UNK
  13. KALEXATE [Concomitant]
     Dosage: UNK

REACTIONS (1)
  - Vomiting [Unknown]
